FAERS Safety Report 11997532 (Version 1)
Quarter: 2016Q1

REPORT INFORMATION
  Report Type: Spontaneous
  Country: US (occurrence: None)
  Receive Date: 20160202
  Receipt Date: 20160202
  Transmission Date: 20160526
  Serious: No
  Sender: FDA-Public Use
  Company Number: None

PATIENT
  Age: 53 Year
  Sex: Female

DRUGS (11)
  1. VITAMIN D [Concomitant]
     Active Substance: CHOLECALCIFEROL
  2. PROGESTERONE. [Concomitant]
     Active Substance: PROGESTERONE
  3. VIEKIRA PAK [Concomitant]
     Active Substance: DASABUVIR\OMBITASVIR\PARITAPREVIR\RITONAVIR
  4. DULOXETINE. [Concomitant]
     Active Substance: DULOXETINE
  5. RIBASPHERE [Suspect]
     Active Substance: RIBAVIRIN
     Indication: HEPATITIS C
     Dosage: 600MG QAM AND QPM PO
     Route: 048
     Dates: start: 20151210
  6. ESTRADIOL. [Concomitant]
     Active Substance: ESTRADIOL
  7. OMEPRAZOLE. [Concomitant]
     Active Substance: OMEPRAZOLE
  8. DIAZEPAM. [Concomitant]
     Active Substance: DIAZEPAM
  9. TRAMADOL. [Concomitant]
     Active Substance: TRAMADOL
  10. HYDROCO/APAP [Concomitant]
     Active Substance: ACETAMINOPHEN\HYDROCODONE
  11. LORAZEPAM. [Concomitant]
     Active Substance: LORAZEPAM

REACTIONS (9)
  - Fatigue [None]
  - Headache [None]
  - Depression [None]
  - Alopecia [None]
  - Weight decreased [None]
  - Diarrhoea [None]
  - Feeling abnormal [None]
  - Decreased appetite [None]
  - Dysgeusia [None]

NARRATIVE: CASE EVENT DATE: 20151210
